FAERS Safety Report 8084353-1 (Version None)
Quarter: 2012Q1

REPORT INFORMATION
  Report Type: 
  Country: None (occurrence: None)
  Receive Date: 20120128
  Receipt Date: 20110125
  Transmission Date: 20120608
  Serious: No
  Sender: FDA-Public Use
  Company Number: US-ABBOTT-11P-163-0701629-00

PATIENT
  Sex: Female

DRUGS (1)
  1. HUMIRA [Suspect]
     Indication: CROHN'S DISEASE
     Dosage: 160MG LOADING DOSE
     Dates: start: 20110119, end: 20110119

REACTIONS (4)
  - HYPOAESTHESIA [None]
  - HYPOAESTHESIA ORAL [None]
  - DYSPHONIA [None]
  - INJECTION SITE PAIN [None]
